FAERS Safety Report 20095998 (Version 1)
Quarter: 2021Q4

REPORT INFORMATION
  Report Type: Spontaneous
  Country: US (occurrence: US)
  Receive Date: 20211122
  Receipt Date: 20211122
  Transmission Date: 20220304
  Serious: No
  Sender: FDA-Public Use
  Company Number: US-ONCOPEPPR-00847

PATIENT
  Sex: Male

DRUGS (1)
  1. MELPHALAN FLUFENAMIDE [Suspect]
     Active Substance: MELPHALAN FLUFENAMIDE
     Indication: Plasma cell myeloma
     Dosage: TIME INTERVAL: CYCLICAL
     Route: 065

REACTIONS (3)
  - Neutropenia [Recovered/Resolved]
  - Dermatitis acneiform [Not Recovered/Not Resolved]
  - Rash [Unknown]
